FAERS Safety Report 5346169-6 (Version None)
Quarter: 2007Q2

REPORT INFORMATION
  Report Type: 
  Country: None (occurrence: None)
  Receive Date: 20070605
  Receipt Date: 20070524
  Transmission Date: 20071010
  Serious: Yes (Hospitalization)
  Sender: FDA-Public Use
  Company Number: FR-JNJFOC-20070506735

PATIENT
  Age: 9 Month
  Sex: Female
  Weight: 7.9 kg

DRUGS (8)
  1. EPITOMAX [Suspect]
     Dosage: 20 MG AM; 15 MG PM FOR 15 DAYS
     Route: 048
  2. EPITOMAX [Suspect]
     Dosage: 10 MG AM; 15 MG PM SIX DAYS
     Route: 048
  3. EPITOMAX [Suspect]
     Dosage: IN THE EVENING
     Route: 048
  4. EPITOMAX [Suspect]
     Indication: EPILEPSY
     Dosage: 10 MG AM; 15 MG PM
     Route: 048
  5. LAMICTAL [Concomitant]
     Indication: CONVULSION PROPHYLAXIS
  6. RIVOTRIL [Concomitant]
     Route: 048
  7. FUMEFER [Concomitant]
  8. FORLAX [Concomitant]

REACTIONS (4)
  - GRAND MAL CONVULSION [None]
  - LOSS OF CONSCIOUSNESS [None]
  - PYREXIA [None]
  - TONIC CONVULSION [None]
